FAERS Safety Report 5382001-2 (Version None)
Quarter: 2007Q3

REPORT INFORMATION
  Report Type: 
  Country: None (occurrence: None)
  Receive Date: 20070709
  Receipt Date: 20070702
  Transmission Date: 20080115
  Serious: Yes (Hospitalization)
  Sender: FDA-Public Use
  Company Number: B0477709A

PATIENT
  Age: 50 Year
  Sex: Male

DRUGS (11)
  1. HYCAMTIN [Suspect]
     Indication: NON-HODGKIN'S LYMPHOMA
     Route: 042
     Dates: start: 20070401
  2. DOXORUBICIN HCL [Concomitant]
     Indication: NON-HODGKIN'S LYMPHOMA
     Route: 065
     Dates: end: 20060817
  3. RITUXIMAB [Concomitant]
     Dates: end: 20060817
  4. NEULASTA [Concomitant]
     Dates: end: 20060817
  5. ETOPOSIDE [Concomitant]
     Dates: start: 20061026
  6. METILPREDNISOLONE [Concomitant]
     Dates: start: 20061026
  7. CYTARABINE [Concomitant]
     Dates: start: 20061026
  8. CISPLATIN [Concomitant]
     Dates: start: 20061026
  9. TAXOL [Concomitant]
  10. MABTHERA [Concomitant]
  11. CHOP CHEMOTHERAPY [Concomitant]
     Dates: end: 20060817

REACTIONS (11)
  - DIARRHOEA [None]
  - FACIAL PALSY [None]
  - HYPOCALCAEMIA [None]
  - HYPOKALAEMIA [None]
  - HYPOMAGNESAEMIA [None]
  - MUSCLE CONTRACTIONS INVOLUNTARY [None]
  - NEUTROPENIA [None]
  - PANCYTOPENIA [None]
  - PARAESTHESIA [None]
  - PYREXIA [None]
  - TETANY [None]
